FAERS Safety Report 24281472 (Version 1)
Quarter: 2024Q3

REPORT INFORMATION
  Report Type: Spontaneous
  Country: DE (occurrence: DE)
  Receive Date: 20240904
  Receipt Date: 20240904
  Transmission Date: 20241017
  Serious: Yes (Other)
  Sender: SANOFI AVENTIS
  Company Number: DE-SA-2018SA271581

PATIENT

DRUGS (3)
  1. SEVELAMER CARBONATE [Interacting]
     Active Substance: SEVELAMER CARBONATE
     Indication: Dialysis
  2. SEVELAMER CARBONATE [Interacting]
     Active Substance: SEVELAMER CARBONATE
     Dosage: UNK
  3. OXCARBAZEPINE [Interacting]
     Active Substance: OXCARBAZEPINE

REACTIONS (2)
  - Poisoning [Recovered/Resolved]
  - Drug interaction [Unknown]
